FAERS Safety Report 4579209-2 (Version None)
Quarter: 2005Q1

REPORT INFORMATION
  Report Type: 
  Country: None (occurrence: None)
  Receive Date: 20050208
  Receipt Date: 20050208
  Transmission Date: 20050727
  Serious: Yes (Other)
  Sender: FDA-Public Use
  Company Number: None

PATIENT
  Sex: Male
  Weight: 83.0083 kg

DRUGS (2)
  1. PAXIL [Suspect]
     Indication: BIPOLAR I DISORDER
     Dosage: 40 MG 2 TABS QD
     Dates: start: 20031209, end: 20040129
  2. PAXIL [Suspect]
     Indication: BIPOLAR I DISORDER
     Dosage: 40 MG 2 TABS QD
     Dates: start: 20050204, end: 20050206

REACTIONS (7)
  - CONDITION AGGRAVATED [None]
  - DEPRESSION [None]
  - IRRITABILITY [None]
  - NIGHTMARE [None]
  - PHARMACEUTICAL PRODUCT COMPLAINT [None]
  - SLEEP DISORDER [None]
  - SOMNOLENCE [None]
